FAERS Safety Report 17542979 (Version 3)
Quarter: 2020Q2

REPORT INFORMATION
  Report Type: Report from Study
  Country: None (occurrence: ZA)
  Receive Date: 20200316
  Receipt Date: 20200410
  Transmission Date: 20200713
  Serious: Yes (Death, Hospitalization)
  Sender: FDA-Public Use
  Company Number: ZA-ABBVIE-20K-143-3320230-00

PATIENT
  Sex: Male

DRUGS (1)
  1. HUMIRA [Suspect]
     Active Substance: ADALIMUMAB
     Indication: RHEUMATOID ARTHRITIS
     Route: 058
     Dates: start: 2016, end: 201910

REACTIONS (8)
  - Rheumatoid arthritis [Unknown]
  - Infective aneurysm [Fatal]
  - Screaming [Unknown]
  - Infection [Not Recovered/Not Resolved]
  - Asthenia [Not Recovered/Not Resolved]
  - Pain [Unknown]
  - Aortic aneurysm rupture [Fatal]
  - Salmonella sepsis [Fatal]
